FAERS Safety Report 7412200-7 (Version None)
Quarter: 2011Q2

REPORT INFORMATION
  Report Type: 
  Country: None (occurrence: None)
  Receive Date: 20110413
  Receipt Date: 20110330
  Transmission Date: 20111010
  Serious: Yes (Hospitalization)
  Sender: FDA-Public Use
  Company Number: JP-CELGENEUS-087-21880-11030336

PATIENT
  Sex: Male

DRUGS (12)
  1. REVLIMID [Suspect]
     Dosage: 10 MILLIGRAM
     Route: 048
     Dates: start: 20110117
  2. ASPIRIN [Concomitant]
     Indication: PROPHYLAXIS
     Dosage: 100 MILLIGRAM
     Route: 048
     Dates: start: 20101214
  3. PARIET [Concomitant]
     Indication: PROPHYLAXIS
     Dosage: 10 MILLIGRAM
     Route: 048
     Dates: start: 20101214
  4. LENADEX [Suspect]
     Dosage: 4 MILLIGRAM
     Route: 048
     Dates: start: 20110125, end: 20110128
  5. DAI-KENCHU-TO [Concomitant]
     Indication: PROPHYLAXIS
     Dosage: 3 PACKS
     Route: 048
     Dates: start: 20101214
  6. REVLIMID [Suspect]
     Indication: MULTIPLE MYELOMA
     Dosage: 10 MILLIGRAM
     Route: 048
     Dates: start: 20101214, end: 20101220
  7. REVLIMID [Suspect]
     Dosage: 15 MILLIGRAM
     Route: 048
     Dates: start: 20101221, end: 20101227
  8. BAKTAR [Concomitant]
     Route: 048
     Dates: start: 20101214
  9. LENADEX [Suspect]
     Indication: MULTIPLE MYELOMA
     Dosage: 4 MILLIGRAM
     Route: 048
     Dates: start: 20101214, end: 20101217
  10. LENADEX [Suspect]
     Dosage: 4 MILLIGRAM
     Route: 048
     Dates: start: 20101221, end: 20101224
  11. ZOVIRAX [Concomitant]
     Indication: PROPHYLAXIS
     Dosage: 200 MILLIGRAM
     Route: 048
     Dates: start: 20101214
  12. ITRIZOLE [Concomitant]
     Indication: PROPHYLAXIS
     Dosage: 10 MILLILITER
     Route: 048
     Dates: start: 20101214

REACTIONS (1)
  - ILEUS [None]
